FAERS Safety Report 4837810-2 (Version None)
Quarter: 2005Q4

REPORT INFORMATION
  Report Type: 
  Country: None (occurrence: None)
  Receive Date: 20051128
  Receipt Date: 20051117
  Transmission Date: 20060501
  Serious: Yes (Hospitalization, Disabling)
  Sender: FDA-Public Use
  Company Number: NO-MERCK-0511NOR00030

PATIENT
  Age: 58 Year
  Sex: Male

DRUGS (6)
  1. VIOXX [Suspect]
     Indication: RHEUMATOID ARTHRITIS
     Route: 048
  2. CELECOXIB [Concomitant]
     Indication: RHEUMATOID ARTHRITIS
     Route: 048
  3. ETORICOXIB [Concomitant]
     Indication: RHEUMATOID ARTHRITIS
     Route: 048
     Dates: end: 20041101
  4. LEVOTHYROXINE SODIUM [Concomitant]
     Route: 065
  5. NITROGLYCERIN [Concomitant]
     Route: 065
  6. ZOPICLONE [Concomitant]
     Route: 065

REACTIONS (6)
  - ABDOMINAL PAIN UPPER [None]
  - CARDIAC DISORDER [None]
  - CEREBRAL INFARCTION [None]
  - HEADACHE [None]
  - HEMIPARESIS [None]
  - PSYCHOSOMATIC DISEASE [None]
